FAERS Safety Report 10412647 (Version 1)
Quarter: 2014Q3

REPORT INFORMATION
  Report Type: Spontaneous
  Country: US (occurrence: None)
  Receive Date: 20140826
  Receipt Date: 20140826
  Transmission Date: 20150326
  Serious: Yes (Disabling)
  Sender: FDA-Public Use
  Company Number: None

PATIENT
  Age: 59 Year
  Sex: Male
  Weight: 113.4 kg

DRUGS (1)
  1. LISINOPRIL 5 MG [Suspect]
     Active Substance: LISINOPRIL
     Indication: ATRIAL PRESSURE
     Dosage: 5 MG QPM ONCE DAILY TAKEN BY MOUTH
     Route: 048
     Dates: start: 20140723, end: 20140824

REACTIONS (3)
  - Pain in extremity [None]
  - Haemorrhage [None]
  - Skin disorder [None]

NARRATIVE: CASE EVENT DATE: 20140818
